FAERS Safety Report 9347176 (Version 2)
Quarter: 2013Q4

REPORT INFORMATION
  Report Type: Report from Study
  Country: US (occurrence: US)
  Receive Date: 20130613
  Receipt Date: 20131125
  Transmission Date: 20140711
  Serious: Yes (Other)
  Sender: FDA-Public Use
  Company Number: US-ELI_LILLY_AND_COMPANY-US201111003704

PATIENT
  Sex: Female

DRUGS (1)
  1. TERIPARATIDE [Suspect]
     Indication: OSTEOPOROSIS
     Dosage: UNK, QD
     Route: 065
     Dates: start: 20111019

REACTIONS (11)
  - Abasia [Unknown]
  - Psoriasis [Unknown]
  - Memory impairment [Unknown]
  - Somnolence [Unknown]
  - Nasopharyngitis [Unknown]
  - Local swelling [Unknown]
  - Insomnia [Unknown]
  - Cough [Unknown]
  - Asthenia [Unknown]
  - Depression [Unknown]
  - Malaise [Unknown]
